FAERS Safety Report 21849477 (Version 3)
Quarter: 2023Q2

REPORT INFORMATION
  Report Type: Report from Study
  Country: AE (occurrence: None)
  Receive Date: 20230111
  Receipt Date: 20230509
  Transmission Date: 20230721
  Serious: Yes (Hospitalization)
  Sender: FDA-Public Use
  Company Number: 2023A003915

PATIENT
  Age: 58 Year
  Sex: Female
  Weight: 52 kg

DRUGS (7)
  1. EVUSHELD [Suspect]
     Active Substance: CILGAVIMAB\TIXAGEVIMAB
     Indication: COVID-19 prophylaxis
     Dosage: 3 ML, ONCE/SINGLE ADMINISTRATION, ADMINISTERED AS 2 SEPARATE IM INJECTIONS (ONE FOR AZD8895 AND O...
     Route: 030
     Dates: start: 20220526
  2. PFIZER-BIONTECH COVID-19 VACCINE [Concomitant]
     Active Substance: TOZINAMERAN
     Indication: COVID-19
     Dates: start: 20210824
  3. PFIZER-BIONTECH COVID-19 VACCINE [Concomitant]
     Active Substance: TOZINAMERAN
     Indication: COVID-19
     Dates: start: 20211025
  4. ACETAMINOPHEN [Concomitant]
     Active Substance: ACETAMINOPHEN
     Indication: Chest pain
     Route: 042
     Dates: start: 20221028, end: 20221028
  5. ACETAMINOPHEN [Concomitant]
     Active Substance: ACETAMINOPHEN
     Indication: Chest pain
     Route: 042
     Dates: start: 20221031, end: 20221102
  6. ACETAMINOPHEN [Concomitant]
     Active Substance: ACETAMINOPHEN
     Indication: Chest pain
     Route: 048
     Dates: start: 20221103, end: 20221111
  7. ONDANSETRON [Concomitant]
     Active Substance: ONDANSETRON
     Indication: Chest pain
     Route: 042
     Dates: start: 20221028, end: 20221028

REACTIONS (3)
  - Headache [Recovered/Resolved]
  - Urinary tract infection [Recovered/Resolved]
  - Dizziness [Recovered/Resolved]

NARRATIVE: CASE EVENT DATE: 20221028
